FAERS Safety Report 18700888 (Version 1)
Quarter: 2021Q1

REPORT INFORMATION
  Report Type: Spontaneous
  Country: US (occurrence: US)
  Receive Date: 20210105
  Receipt Date: 20210105
  Transmission Date: 20210419
  Serious: Yes (Hospitalization)
  Sender: FDA-Public Use
  Company Number: None

PATIENT
  Age: 69 Year
  Sex: Female
  Weight: 78.9 kg

DRUGS (2)
  1. TAXOL [Concomitant]
     Active Substance: PACLITAXEL
  2. CARBOPLATIN (241240) [Suspect]
     Active Substance: CARBOPLATIN

REACTIONS (3)
  - Oesophagitis [None]
  - Feeling abnormal [None]
  - Dysphagia [None]

NARRATIVE: CASE EVENT DATE: 20201231
